FAERS Safety Report 4307476-9 (Version None)
Quarter: 2004Q1

REPORT INFORMATION
  Report Type: 
  Country: None (occurrence: None)
  Receive Date: 20040226
  Receipt Date: 20040220
  Transmission Date: 20041129
  Serious: Yes (Other)
  Sender: FDA-Public Use
  Company Number: 200410436GDS

PATIENT
  Age: 35 Year
  Sex: Male
  Weight: 65 kg

DRUGS (1)
  1. LEVITRA [Suspect]
     Indication: ERECTILE DYSFUNCTION
     Dosage: 20 MG, TOTAL DAILY, ORAL
     Route: 048
     Dates: start: 20031221

REACTIONS (6)
  - CHROMATOPSIA [None]
  - DIZZINESS [None]
  - FEELING HOT [None]
  - HYPOAESTHESIA [None]
  - NASAL CONGESTION [None]
  - PALPITATIONS [None]
